FAERS Safety Report 7016804-5 (Version None)
Quarter: 2010Q3

REPORT INFORMATION
  Report Type: 
  Country: None (occurrence: None)
  Receive Date: 20100927
  Receipt Date: 20100915
  Transmission Date: 20110219
  Serious: Yes (Death)
  Sender: FDA-Public Use
  Company Number: LB-GENENTECH-306699

PATIENT
  Sex: Female

DRUGS (1)
  1. MABTHERA [Suspect]
     Indication: POLYMYOSITIS
     Dosage: UNK
     Route: 065

REACTIONS (1)
  - DEATH [None]
